FAERS Safety Report 4853244-9 (Version None)
Quarter: 2005Q4

REPORT INFORMATION
  Report Type: 
  Country: None (occurrence: None)
  Receive Date: 20051213
  Receipt Date: 20051213
  Transmission Date: 20060501
  Serious: Yes (Hospitalization)
  Sender: FDA-Public Use
  Company Number: None

PATIENT
  Age: 75 Year
  Sex: Female
  Weight: 62.5964 kg

DRUGS (1)
  1. REMERON [Suspect]
     Indication: DEPRESSION
     Dosage: 30 MG HS PO
     Route: 048

REACTIONS (4)
  - AGRANULOCYTOSIS [None]
  - ARTHRALGIA [None]
  - MYALGIA [None]
  - NAUSEA [None]
